FAERS Safety Report 4710982-6 (Version None)
Quarter: 2005Q3

REPORT INFORMATION
  Report Type: 
  Country: None (occurrence: None)
  Receive Date: 20050708
  Receipt Date: 20050708
  Transmission Date: 20060218
  Serious: Yes (Life-Threatening)
  Sender: FDA-Public Use
  Company Number: None

PATIENT
  Age: 39 Year
  Sex: Female
  Weight: 62 kg

DRUGS (5)
  1. MITOXANTRONE [Suspect]
     Indication: MULTIPLE SCLEROSIS
     Dosage: 12 MG/M2 IV Q MONTH X 3  THEN 12 MG/M2 IV Q 3 MONTHS X 10 DOSES
     Route: 042
     Dates: start: 20020107, end: 20031114
  2. MITOXANTRONE [Suspect]
  3. MITOXANTRONE [Suspect]
  4. MITOXANTRONE [Suspect]
  5. MITOXANTRONE [Suspect]

REACTIONS (1)
  - ACUTE MYELOID LEUKAEMIA [None]
